FAERS Safety Report 4581429-8 (Version None)
Quarter: 2005Q1

REPORT INFORMATION
  Report Type: 
  Country: None (occurrence: None)
  Receive Date: 20050214
  Receipt Date: 20041021
  Transmission Date: 20050727
  Serious: No
  Sender: FDA-Public Use
  Company Number: US-GLAXOSMITHKLINE-A0530821A

PATIENT
  Age: 20 Year
  Sex: Female

DRUGS (6)
  1. LAMICTAL [Suspect]
     Indication: DEPRESSION
     Dosage: 150MG PER DAY
     Route: 048
  2. UNSPECIFIED MEDICATION [Concomitant]
  3. ALDACTONE [Concomitant]
  4. METFORMIN HCL [Concomitant]
  5. BEXTRA [Concomitant]
  6. BIRTH CONTROL [Concomitant]

REACTIONS (4)
  - ANXIETY [None]
  - COUGH [None]
  - INSOMNIA [None]
  - SOMNOLENCE [None]
